FAERS Safety Report 9708657 (Version 1)
Quarter: 2013Q4

REPORT INFORMATION
  Report Type: Spontaneous
  Country: SA (occurrence: None)
  Receive Date: 20131121
  Receipt Date: 20131121
  Transmission Date: 20140711
  Serious: Yes (Life-Threatening)
  Sender: FDA-Public Use
  Company Number: 2013P1021102

PATIENT
  Age: 12 Year
  Sex: Female

DRUGS (1)
  1. LIDOCAINE [Suspect]
     Indication: DENTAL CARE

REACTIONS (1)
  - Drug hypersensitivity [None]
